FAERS Safety Report 25849834 (Version 1)
Quarter: 2025Q3

REPORT INFORMATION
  Report Type: Report from Study
  Country: US (occurrence: US)
  Receive Date: 20250926
  Receipt Date: 20250926
  Transmission Date: 20251021
  Serious: Yes (Other)
  Sender: ALEXION PHARMACEUTICALS
  Company Number: US-ASTRAZENECA-A202208372

PATIENT
  Age: 58 Year
  Sex: Female

DRUGS (1)
  1. STRENSIQ [Suspect]
     Active Substance: ASFOTASE ALFA
     Indication: Phosphorus metabolism disorder
     Dosage: 2 MILLIGRAM/KILOGRAM, TIW
     Route: 065

REACTIONS (26)
  - Pericardial effusion [Unknown]
  - Hand fracture [Unknown]
  - Arthralgia [Unknown]
  - Neck pain [Unknown]
  - Inflammation [Recovering/Resolving]
  - Sleep disorder [Unknown]
  - Arthralgia [Unknown]
  - Back pain [Unknown]
  - Arthralgia [Unknown]
  - Rash [Unknown]
  - Pain [Unknown]
  - Burning sensation [Unknown]
  - Oromandibular dystonia [Unknown]
  - Myalgia [Unknown]
  - Photosensitivity reaction [Unknown]
  - Alopecia [Unknown]
  - Fatigue [Unknown]
  - Dizziness [Unknown]
  - Weight decreased [Unknown]
  - Visual impairment [Unknown]
  - Constipation [Unknown]
  - Dyspnoea [Unknown]
  - Peripheral coldness [Unknown]
  - Anxiety [Unknown]
  - Depressed mood [Unknown]
  - Asthenia [Unknown]

NARRATIVE: CASE EVENT DATE: 20250801
